FAERS Safety Report 4464104-X (Version None)
Quarter: 2004Q3

REPORT INFORMATION
  Report Type: 
  Country: None (occurrence: None)
  Receive Date: 20040929
  Receipt Date: 20040929
  Transmission Date: 20050211
  Serious: No
  Sender: FDA-Public Use
  Company Number: None

PATIENT
  Sex: Male
  Weight: 56.6996 kg

DRUGS (1)
  1. DEPAKOTE [Suspect]
     Indication: OSTEOARTHRITIS

REACTIONS (1)
  - DEAFNESS UNILATERAL [None]
